FAERS Safety Report 9153448 (Version 1)
Quarter: 2013Q1

REPORT INFORMATION
  Report Type: Spontaneous
  Country: US (occurrence: None)
  Receive Date: 20130204
  Receipt Date: 20130204
  Transmission Date: 20140127
  Serious: Yes (Other)
  Sender: FDA-Public Use
  Company Number: THQ2013A00664

PATIENT
  Age: 73 Year
  Sex: Male

DRUGS (4)
  1. ZACTOS (PIOGLITAZONE HYDROCHLORIDE) [Suspect]
     Indication: TYPE 2 DIABETES MELLITUS
     Route: 065
     Dates: start: 20110504, end: 20110908
  2. CAPTOPRIL [Concomitant]
  3. GLYBURIDE (GLIBENCLAMIDE) [Concomitant]
  4. METFORMIN (METFORMIN HYDROCHLORIDE) [Concomitant]

REACTIONS (3)
  - Blood creatinine increased [None]
  - Glomerulonephritis rapidly progressive [None]
  - Haemoglobin abnormal [None]
